FAERS Safety Report 5910348-7 (Version None)
Quarter: 2008Q4

REPORT INFORMATION
  Report Type: 
  Country: None (occurrence: None)
  Receive Date: 20081007
  Receipt Date: 20071210
  Transmission Date: 20090506
  Serious: No
  Sender: FDA-Public Use
  Company Number: US-ASTRAZENECA-2007UW28158

PATIENT
  Age: 73 Year
  Sex: Female
  Weight: 77.1 kg

DRUGS (4)
  1. ARIMIDEX [Suspect]
     Indication: BREAST CANCER
     Route: 048
     Dates: start: 20070701
  2. LIPITOR [Concomitant]
  3. VITAMINS [Concomitant]
  4. FOSAMAX [Concomitant]

REACTIONS (3)
  - ALOPECIA [None]
  - BURN OESOPHAGEAL [None]
  - GASTROINTESTINAL DISORDER [None]
